FAERS Safety Report 9081671 (Version 1)
Quarter: 2013Q1

REPORT INFORMATION
  Report Type: Report from Study
  Country: US (occurrence: US)
  Receive Date: 20130130
  Receipt Date: 20130130
  Transmission Date: 20140127
  Serious: No
  Sender: FDA-Public Use
  Company Number: US-ABBOTT-12P-163-0954757-00

PATIENT
  Age: 22 None
  Sex: Male
  Weight: 68.1 kg

DRUGS (5)
  1. HUMIRA 40 MG/0.8 ML PEN [Suspect]
     Indication: CROHN^S DISEASE
     Dosage: LOADING DOSE
     Dates: start: 20120703, end: 20120703
  2. HUMIRA 40 MG/0.8 ML PEN [Suspect]
     Route: 050
     Dates: start: 20120717, end: 20120717
  3. CIPRO [Concomitant]
     Indication: PRODUCT USED FOR UNKNOWN INDICATION
  4. PREDNISONE [Concomitant]
     Indication: CROHN^S DISEASE
  5. FLAGYL [Concomitant]
     Indication: CROHN^S DISEASE

REACTIONS (2)
  - Rash papular [Not Recovered/Not Resolved]
  - Acne [Not Recovered/Not Resolved]
